FAERS Safety Report 4917973-0 (Version None)
Quarter: 2006Q1

REPORT INFORMATION
  Report Type: 
  Country: None (occurrence: None)
  Receive Date: 20060221
  Receipt Date: 20050928
  Transmission Date: 20060701
  Serious: Yes (Hospitalization, Disabling, Other)
  Sender: FDA-Public Use
  Company Number: US-MERCK-0509USA04802

PATIENT
  Age: 54 Year
  Sex: Female
  Weight: 63 kg

DRUGS (6)
  1. VIOXX [Suspect]
     Indication: INFLAMMATION
     Route: 048
     Dates: start: 20040419, end: 20040501
  2. VIOXX [Suspect]
     Route: 048
     Dates: start: 20040419, end: 20040501
  3. VIOXX [Suspect]
     Indication: MUSCULOSKELETAL CHEST PAIN
     Route: 048
     Dates: start: 20040419, end: 20040501
  4. VIOXX [Suspect]
     Route: 048
     Dates: start: 20040419, end: 20040501
  5. PERCOCET [Concomitant]
     Route: 065
  6. ENDOCET [Concomitant]
     Route: 065

REACTIONS (11)
  - CEREBROVASCULAR ACCIDENT [None]
  - CHEST PAIN [None]
  - HAEMANGIOMA [None]
  - HEMIPARESIS [None]
  - HERPES ZOSTER [None]
  - HYPERLIPIDAEMIA [None]
  - INTERVERTEBRAL DISC PROTRUSION [None]
  - MUSCULOSKELETAL CHEST PAIN [None]
  - RADICULOPATHY [None]
  - TRANSIENT ISCHAEMIC ATTACK [None]
  - VERTEBRAL INJURY [None]
